FAERS Safety Report 13869020 (Version 3)
Quarter: 2017Q4

REPORT INFORMATION
  Report Type: Spontaneous
  Country: JP (occurrence: JP)
  Receive Date: 20170815
  Receipt Date: 20171026
  Transmission Date: 20180320
  Serious: Yes (Other)
  Sender: FDA-Public Use
  Company Number: PHJP2017JP025751

PATIENT
  Age: 52 Year
  Sex: Female

DRUGS (1)
  1. ZOMETA [Suspect]
     Active Substance: ZOLEDRONIC ACID
     Indication: METASTASES TO BONE
     Dosage: UNK
     Route: 041

REACTIONS (3)
  - Osteonecrosis of jaw [Recovered/Resolved]
  - Exposed bone in jaw [Unknown]
  - Periodontitis [Unknown]

NARRATIVE: CASE EVENT DATE: 201303
